FAERS Safety Report 12555020 (Version 11)
Quarter: 2017Q2

REPORT INFORMATION
  Report Type: Report from Study
  Country: ES (occurrence: ES)
  Receive Date: 20160714
  Receipt Date: 20170504
  Transmission Date: 20170830
  Serious: Yes (Hospitalization)
  Sender: FDA-Public Use
  Company Number: ES-ROCHE-1791705

PATIENT
  Age: 70 Year
  Sex: Male
  Weight: 93 kg

DRUGS (14)
  1. TORASEMIDA [Concomitant]
     Active Substance: TORSEMIDE
     Route: 065
     Dates: start: 20110321
  2. COMBIPRASAL [Concomitant]
     Active Substance: ALBUTEROL SULFATE\IPRATROPIUM BROMIDE
     Dosage: 3 AMPULE
     Route: 065
     Dates: start: 20160709, end: 20160721
  3. DEXAMETHASONE. [Concomitant]
     Active Substance: DEXAMETHASONE
     Route: 065
     Dates: start: 20160302
  4. BEVACIZUMAB [Suspect]
     Active Substance: BEVACIZUMAB
     Indication: COLORECTAL CANCER METASTATIC
     Dosage: DATE OF MOST RECENT DOSE (465MG) PRIOR TO SAE: 15/JUN/2016
     Route: 042
     Dates: start: 20160302
  5. DEXAMETHASONE. [Concomitant]
     Active Substance: DEXAMETHASONE
     Route: 065
     Dates: start: 20160302, end: 20160615
  6. 5-FLUOROURACIL [Suspect]
     Active Substance: FLUOROURACIL
     Indication: COLORECTAL CANCER METASTATIC
     Dosage: DATE OF MOST RECENT DOSE (800 MG BOLUS AND 4800 PERFUSION) PRIOR TO SAE: 15/JUN/2016
     Route: 042
     Dates: start: 20160302
  7. OXALIPLATIN. [Suspect]
     Active Substance: OXALIPLATIN
     Indication: COLORECTAL CANCER METASTATIC
     Dosage: DATE OF MOST RECENT DOSE (136 MG) PRIOR TO SAE: 15/JUN/2016
     Route: 042
     Dates: start: 20160302
  8. EXFORGE [Concomitant]
     Active Substance: AMLODIPINE BESYLATE\VALSARTAN
     Route: 065
     Dates: start: 20140825
  9. ZOMARIST (SPAIN) [Concomitant]
     Dosage: 50/100
     Route: 065
     Dates: start: 20150902
  10. ONDANSETRON [Concomitant]
     Active Substance: ONDANSETRON
     Route: 065
     Dates: start: 20160302, end: 20160615
  11. LANTUS SOLOSTAR [Concomitant]
     Active Substance: INSULIN GLARGINE
     Dosage: 70 UNIT
     Route: 065
     Dates: start: 20160225
  12. BOI K [Concomitant]
     Active Substance: POTASSIUM ASCORBATE
     Indication: HYPOKALAEMIA
     Dosage: 2 AMPULE
     Route: 065
     Dates: start: 20160711, end: 20160714
  13. FOLINIC ACID [Suspect]
     Active Substance: LEUCOVORIN
     Indication: COLORECTAL CANCER METASTATIC
     Dosage: DATE OF MOST RECENT DOSE (800 MG) PRIOR TO SAE: 15/JUN/2016
     Route: 042
     Dates: start: 20160302
  14. LORAZEPAM. [Concomitant]
     Active Substance: LORAZEPAM
     Route: 065
     Dates: start: 20140825

REACTIONS (1)
  - Intestinal obstruction [Recovered/Resolved]

NARRATIVE: CASE EVENT DATE: 20160707
